FAERS Safety Report 6015794-1 (Version None)
Quarter: 2008Q4

REPORT INFORMATION
  Report Type: 
  Country: None (occurrence: None)
  Receive Date: 20081219
  Receipt Date: 20081219
  Transmission Date: 20090506
  Serious: Yes (Other)
  Sender: FDA-Public Use
  Company Number: None

PATIENT
  Age: 66 Year
  Sex: Male
  Weight: 112.0385 kg

DRUGS (1)
  1. CARAC [Suspect]
     Indication: ACTINIC KERATOSIS
     Dates: start: 20080801, end: 20080901

REACTIONS (4)
  - RASH [None]
  - RASH PRURITIC [None]
  - SKIN DISORDER [None]
  - SKIN ULCER [None]
